FAERS Safety Report 7430406-8 (Version None)
Quarter: 2011Q2

REPORT INFORMATION
  Report Type: 
  Country: None (occurrence: None)
  Receive Date: 20110421
  Receipt Date: 20100818
  Transmission Date: 20111010
  Serious: No
  Sender: FDA-Public Use
  Company Number: US-ASTRAZENECA-2010SE38875

PATIENT
  Age: 90 Year
  Sex: Female
  Weight: 47.2 kg

DRUGS (1)
  1. METOPROLOL SUCCINATE [Suspect]
     Indication: BRADYCARDIA
     Route: 048

REACTIONS (6)
  - FAECAL INCONTINENCE [None]
  - FALL [None]
  - PERIPHERAL COLDNESS [None]
  - DIPLOPIA [None]
  - OEDEMA PERIPHERAL [None]
  - FATIGUE [None]
